FAERS Safety Report 7042690-3 (Version None)
Quarter: 2010Q4

REPORT INFORMATION
  Report Type: 
  Country: None (occurrence: None)
  Receive Date: 20101013
  Receipt Date: 20100618
  Transmission Date: 20110411
  Serious: No
  Sender: FDA-Public Use
  Company Number: US-ASTRAZENECA-2010SE28639

PATIENT
  Sex: Male
  Weight: 81.2 kg

DRUGS (1)
  1. SYMBICORT [Suspect]
     Indication: ASTHMA
     Route: 055
     Dates: start: 20100615

REACTIONS (3)
  - DRY THROAT [None]
  - LIP DRY [None]
  - PRODUCT TASTE ABNORMAL [None]
